FAERS Safety Report 15133009 (Version 5)
Quarter: 2018Q4

REPORT INFORMATION
  Report Type: Spontaneous
  Country: US (occurrence: US)
  Receive Date: 20180712
  Receipt Date: 20181127
  Transmission Date: 20190204
  Serious: No
  Sender: FDA-Public Use
  Company Number: US-CELGENEUS-USA-20180702238

PATIENT
  Age: 71 Year
  Sex: Female

DRUGS (5)
  1. REVLIMID [Suspect]
     Active Substance: LENALIDOMIDE
     Indication: PLASMA CELL MYELOMA
     Route: 048
     Dates: start: 20180216
  2. DEXAMETHASONE. [Concomitant]
     Active Substance: DEXAMETHASONE
     Indication: PRODUCT USED FOR UNKNOWN INDICATION
     Route: 065
  3. REVLIMID [Suspect]
     Active Substance: LENALIDOMIDE
     Dosage: 10 MILLIGRAM
     Route: 048
     Dates: start: 20180709
  4. CYCLOPHOSPHAMIDE. [Concomitant]
     Active Substance: CYCLOPHOSPHAMIDE
     Indication: PRODUCT USED FOR UNKNOWN INDICATION
     Route: 065
  5. REVLIMID [Suspect]
     Active Substance: LENALIDOMIDE
     Dosage: 15 MILLIGRAM
     Route: 048
     Dates: start: 20180612

REACTIONS (12)
  - Product dose omission [Unknown]
  - Skin ulcer [Unknown]
  - Gait inability [Unknown]
  - Headache [Not Recovered/Not Resolved]
  - Muscle spasms [Not Recovered/Not Resolved]
  - Nausea [Not Recovered/Not Resolved]
  - Tremor [Unknown]
  - Somnolence [Not Recovered/Not Resolved]
  - Pruritus [Not Recovered/Not Resolved]
  - Fatigue [Not Recovered/Not Resolved]
  - Feeling drunk [Recovering/Resolving]
  - Abdominal pain upper [Not Recovered/Not Resolved]

NARRATIVE: CASE EVENT DATE: 2018
